FAERS Safety Report 9407911 (Version 1)
Quarter: 2013Q3

REPORT INFORMATION
  Report Type: Spontaneous
  Country: US (occurrence: US)
  Receive Date: 20130718
  Receipt Date: 20130718
  Transmission Date: 20140515
  Serious: Yes (Other)
  Sender: FDA-Public Use
  Company Number: US-PFIZER INC-2013206394

PATIENT
  Age: 77 Year
  Sex: Female
  Weight: 57 kg

DRUGS (2)
  1. PREMARIN [Suspect]
     Indication: HORMONE REPLACEMENT THERAPY
     Dosage: 1.25 MG, 1X/DAY
     Route: 048
     Dates: start: 1973
  2. SYNTHROID [Interacting]
     Dosage: UNK, 1X/DAY
     Route: 048
     Dates: start: 2004

REACTIONS (4)
  - Drug interaction [Unknown]
  - Hypertension [Unknown]
  - Alopecia [Unknown]
  - Fat tissue increased [Unknown]
